FAERS Safety Report 13121732 (Version 3)
Quarter: 2017Q1

REPORT INFORMATION
  Report Type: Spontaneous
  Country: DK (occurrence: DK)
  Receive Date: 20170117
  Receipt Date: 20170120
  Transmission Date: 20170428
  Serious: Yes (Life-Threatening, Hospitalization)
  Sender: FDA-Public Use
  Company Number: DK-TEVA-728168ACC

PATIENT
  Age: 68 Year
  Sex: Female

DRUGS (16)
  1. METOPROLOLSUCCINAT ^HEXAL^ [Concomitant]
     Active Substance: METOPROLOL SUCCINATE
     Indication: HYPERTENSION
     Dates: start: 20161227
  2. OXALIPLATIN ^FRESENIUS KABI^ [Suspect]
     Active Substance: OXALIPLATIN
     Indication: OESOPHAGEAL ADENOCARCINOMA
     Dosage: DOSAGE: VARYING
     Route: 042
     Dates: start: 20160616, end: 20161103
  3. ATENODAN [Concomitant]
     Indication: HYPERTENSION
     Dates: end: 20161227
  4. SIMVASTATIN ^ORION^ [Concomitant]
     Active Substance: SIMVASTATIN
     Indication: HYPERCHOLESTEROLAEMIA
  5. EPIRUBICIN TEVA [Suspect]
     Active Substance: EPIRUBICIN
     Indication: OESOPHAGEAL ADENOCARCINOMA
     Dosage: DOSAGE: VARYING, STRENGHT: 100 ML AND 25 ML
     Route: 042
     Dates: start: 20160606
  6. OXALIPLATIN ^ACCORD^ [Suspect]
     Active Substance: OXALIPLATIN
     Indication: OESOPHAGEAL ADENOCARCINOMA
     Dosage: DOSAGE: VARYING
     Route: 042
     Dates: start: 20160616, end: 20161103
  7. INNOHEP [Concomitant]
     Active Substance: TINZAPARIN SODIUM
     Indication: PULMONARY EMBOLISM
     Dates: start: 20161030
  8. MABLET [Concomitant]
     Indication: HYPOMAGNESAEMIA
  9. PINEX [Concomitant]
     Active Substance: ACETAMINOPHEN
     Indication: PAIN
  10. PIPERACILLIN/TAZOBACTAM ^SANDOZ^ [Concomitant]
     Indication: UROSEPSIS
     Dates: start: 20161223
  11. CAPECITABINE ^ACCORD [Suspect]
     Active Substance: CAPECITABINE
     Indication: OESOPHAGEAL ADENOCARCINOMA
     Dosage: DOSAGE: VARYING, STRENGHT: 150 AND 500 MG
     Route: 048
     Dates: start: 20160116, end: 20161223
  12. ALLOPURINOL ^DAK^ [Concomitant]
     Active Substance: ALLOPURINOL
     Indication: BLOOD URIC ACID INCREASED
  13. ELTROXIN [Concomitant]
     Active Substance: LEVOTHYROXINE
     Indication: HYPOTHYROIDISM
  14. ESTRING [Concomitant]
     Active Substance: ESTRADIOL
     Indication: HORMONE REPLACEMENT THERAPY
  15. ENALAPRIL ^SANDOZ^ [Concomitant]
     Indication: HYPERTENSION
  16. PANTOPRAZOL ^ACTAVIS^ [Concomitant]
     Indication: GASTROOESOPHAGEAL REFLUX DISEASE

REACTIONS (4)
  - Leukopenia [Not Recovered/Not Resolved]
  - Confusional state [Recovering/Resolving]
  - Urosepsis [Recovering/Resolving]
  - Anaemia [Not Recovered/Not Resolved]

NARRATIVE: CASE EVENT DATE: 20161223
